FAERS Safety Report 14068141 (Version 2)
Quarter: 2017Q4

REPORT INFORMATION
  Report Type: Spontaneous
  Country: CA (occurrence: CA)
  Receive Date: 20171010
  Receipt Date: 20171021
  Transmission Date: 20180321
  Serious: Yes (Other)
  Sender: FDA-Public Use
  Company Number: CA-AUROBINDO-AUR-APL-2017-41452

PATIENT
  Age: 59 Year
  Sex: Female
  Weight: 74.83 kg

DRUGS (4)
  1. AURO-DULOXETINE 30MG DELAYED RELEASE CAPSULES [Suspect]
     Active Substance: DULOXETINE HYDROCHLORIDE
     Indication: COGNITIVE DISORDER
     Dosage: 30 MG, ONCE A DAY
     Route: 048
  2. CLONIDINE. [Concomitant]
     Active Substance: CLONIDINE
     Indication: PRODUCT USED FOR UNKNOWN INDICATION
     Route: 065
  3. AURO-DULOXETINE 30MG DELAYED RELEASE CAPSULES [Suspect]
     Active Substance: DULOXETINE HYDROCHLORIDE
     Indication: CRANIOCEREBRAL INJURY
  4. AURO-DULOXETINE 30MG DELAYED RELEASE CAPSULES [Suspect]
     Active Substance: DULOXETINE HYDROCHLORIDE
     Indication: POST-TRAUMATIC STRESS DISORDER
     Dosage: 60 MG, ONCE A DAY
     Route: 048

REACTIONS (3)
  - Product substitution issue [Unknown]
  - Abdominal discomfort [Unknown]
  - Decreased appetite [Unknown]
